FAERS Safety Report 4300801-4 (Version None)
Quarter: 2004Q1

REPORT INFORMATION
  Report Type: 
  Country: None (occurrence: None)
  Receive Date: 20040218
  Receipt Date: 20040205
  Transmission Date: 20041129
  Serious: Yes (Disabling)
  Sender: FDA-Public Use
  Company Number: US-JNJF0C-20040201831

PATIENT
  Age: 55 Year
  Sex: Male
  Weight: 85.7298 kg

DRUGS (6)
  1. REMICADE [Suspect]
     Indication: RHEUMATOID ARTHRITIS
     Dosage: 3 MG, INTRAVENOUS
     Route: 042
     Dates: start: 20020101
  2. METHADONE HCL [Concomitant]
  3. NEXIUM [Concomitant]
  4. METHOTREXATE [Concomitant]
  5. PREDNISONE [Concomitant]
  6. ALPRAZOLAM [Concomitant]

REACTIONS (4)
  - DIFFICULTY IN WALKING [None]
  - JOINT SWELLING [None]
  - OEDEMA PERIPHERAL [None]
  - PAIN [None]
